FAERS Safety Report 8695868 (Version 2)
Quarter: 2012Q4

REPORT INFORMATION
  Report Type: 
  Country: FR (occurrence: FR)
  Receive Date: 20120801
  Receipt Date: 20120919
  Transmission Date: 20130627
  Serious: Yes (Hospitalization, Other)
  Sender: FDA-Public Use
  Company Number: FR-AMGEN-FRASP2012046899

PATIENT
  Age: 57 Year
  Sex: Male
  Weight: 76 kg

DRUGS (4)
  1. VECTIBIX [Suspect]
     Indication: COLORECTAL CANCER
     Dosage: 250 mg, q2wk
     Route: 042
     Dates: start: 20120427, end: 20120713
  2. LEVOFOLINATE CALCIUM [Concomitant]
     Indication: COLORECTAL CANCER
     Dosage: 400 mg, q2wk
     Route: 042
     Dates: start: 20120330, end: 20120713
  3. OXALIPLATIN [Concomitant]
     Indication: COLORECTAL CANCER
     Dosage: 160 mg, q2wk
     Route: 042
     Dates: start: 20120330, end: 20120713
  4. 5 FU [Concomitant]
     Indication: COLORECTAL CANCER
     Dosage: 3600 mg, q2wk
     Dates: start: 20120330, end: 20120713

REACTIONS (3)
  - Necrotising fasciitis [Unknown]
  - Skin reaction [Unknown]
  - Dermatitis [Recovered/Resolved]
